FAERS Safety Report 10022513 (Version 3)
Quarter: 2014Q2

REPORT INFORMATION
  Report Type: Spontaneous
  Country: JP (occurrence: JP)
  Receive Date: 20140319
  Receipt Date: 20140407
  Transmission Date: 20141212
  Serious: Yes (Hospitalization, Other)
  Sender: FDA-Public Use
  Company Number: JP-PFIZER INC-2013374024

PATIENT
  Age: 71 Year
  Sex: Male
  Weight: 60 kg

DRUGS (3)
  1. LIPITOR [Suspect]
     Indication: HYPERLIPIDAEMIA
     Dosage: 10 MG, 1X/DAY
     Route: 048
     Dates: start: 20100216, end: 20131126
  2. NORVASC [Concomitant]
     Indication: HYPERTENSION
     Dosage: UNK
     Dates: start: 20100216
  3. GLACTIV [Concomitant]
     Indication: DIABETES MELLITUS
     Dosage: UNK
     Dates: start: 20130726

REACTIONS (4)
  - Rhabdomyolysis [Recovered/Resolved]
  - Bladder cancer [Unknown]
  - Bladder cancer recurrent [Unknown]
  - Urinary tract infection [Unknown]
